FAERS Safety Report 11968693 (Version 1)
Quarter: 2016Q1

REPORT INFORMATION
  Report Type: Report from Study
  Country: AU (occurrence: AU)
  Receive Date: 20160128
  Receipt Date: 20160128
  Transmission Date: 20160526
  Serious: Yes (Other)
  Sender: FDA-Public Use
  Company Number: AU-BRISTOL-MYERS SQUIBB COMPANY-13007240

PATIENT
  Age: 40 Year
  Sex: Female

DRUGS (1)
  1. ENTECAVIR. [Suspect]
     Active Substance: ENTECAVIR
     Indication: CHRONIC HEPATITIS B
     Dosage: 1 MG, QD
     Route: 048
     Dates: start: 20040722, end: 20050615

REACTIONS (3)
  - Gestational diabetes [Unknown]
  - Abortion induced [Unknown]
  - Pregnancy on contraceptive [Recovered/Resolved]

NARRATIVE: CASE EVENT DATE: 20050623
